FAERS Safety Report 5096267-X (Version None)
Quarter: 2006Q3

REPORT INFORMATION
  Report Type: 
  Country: None (occurrence: None)
  Receive Date: 20060905
  Receipt Date: 20060825
  Transmission Date: 20061208
  Serious: Yes (Hospitalization)
  Sender: FDA-Public Use
  Company Number: US-NOVOPROD-256392

PATIENT
  Age: 14 Year
  Sex: Female

DRUGS (1)
  1. NORDITROPIN NORDIFLEX [Suspect]
     Indication: ILL-DEFINED DISORDER
     Dosage: UNKNOWN
     Route: 058
     Dates: start: 20060816, end: 20060801

REACTIONS (3)
  - OEDEMA PERIPHERAL [None]
  - PLEURAL EFFUSION [None]
  - SWELLING [None]
